FAERS Safety Report 5092737-9 (Version None)
Quarter: 2006Q3

REPORT INFORMATION
  Report Type: 
  Country: None (occurrence: None)
  Receive Date: 20060727
  Receipt Date: 20060605
  Transmission Date: 20061208
  Serious: Yes (Other)
  Sender: FDA-Public Use
  Company Number: 2006072741

PATIENT
  Age: 55 Year
  Sex: Female
  Weight: 52.1637 kg

DRUGS (5)
  1. LYRICA [Suspect]
     Indication: PELVIC PAIN
     Dosage: 50 MG (50 MG, 1 IN 1 D)
     Dates: start: 20060417
  2. ELMIRON [Concomitant]
  3. DRUG, UNSPECIFIED (DRUG, UNSPECIFIED) [Concomitant]
  4. PREFEST [Concomitant]
  5. ACTONEL [Concomitant]

REACTIONS (1)
  - DRUG INEFFECTIVE [None]
